FAERS Safety Report 9374619 (Version 1)
Quarter: 2013Q2

REPORT INFORMATION
  Report Type: Spontaneous
  Country: US (occurrence: US)
  Receive Date: 20130628
  Receipt Date: 20130628
  Transmission Date: 20140414
  Serious: Yes (Other)
  Sender: FDA-Public Use
  Company Number: US-PFIZER INC-2013191812

PATIENT
  Age: 59 Year
  Sex: Female
  Weight: 113 kg

DRUGS (8)
  1. PRISTIQ [Suspect]
     Indication: BIPOLAR DISORDER
     Dosage: 50 MG,  DAILY
     Dates: start: 2008
  2. PRISTIQ [Suspect]
     Dosage: 100 MG, DAILY
  3. LITHIUM [Concomitant]
     Dosage: 600 MG, 2X/DAY
  4. LAMICTAL [Concomitant]
     Dosage: 100 MG, 2X/DAY
  5. KLONOPIN [Concomitant]
     Dosage: 0.5 MG, 2X/DAY
  6. AMBIEN [Concomitant]
     Indication: SLEEP DISORDER
     Dosage: 12.5 MG, DAILY
  7. TRAZODONE [Concomitant]
     Indication: SLEEP DISORDER
     Dosage: UNK, DAILY
  8. PRILOSEC [Concomitant]
     Indication: DYSPEPSIA
     Dosage: UNK

REACTIONS (2)
  - Depression [Unknown]
  - Off label use [Unknown]
